FAERS Safety Report 9519914 (Version 2)
Quarter: 2013Q3

REPORT INFORMATION
  Report Type: Spontaneous
  Country: DZ (occurrence: DZ)
  Receive Date: 20130912
  Receipt Date: 20130918
  Transmission Date: 20140515
  Serious: Yes (Other)
  Sender: FDA-Public Use
  Company Number: DZ-ROCHE-1272916

PATIENT
  Age: 50 Year
  Sex: Male

DRUGS (2)
  1. PEGASYS [Suspect]
     Indication: HEPATITIS C
     Route: 058
     Dates: start: 201302, end: 201306
  2. COPEGUS [Suspect]
     Indication: HEPATITIS C
     Dosage: 8 TABLETS PER DAY
     Route: 048
     Dates: start: 201302, end: 201306

REACTIONS (5)
  - Ascites [Recovering/Resolving]
  - Hepatic failure [Unknown]
  - White blood cell count decreased [Recovering/Resolving]
  - Pyrexia [Recovering/Resolving]
  - General physical condition abnormal [Recovering/Resolving]
